FAERS Safety Report 6662510-6 (Version None)
Quarter: 2010Q1

REPORT INFORMATION
  Report Type: 
  Country: None (occurrence: None)
  Receive Date: 20100329
  Receipt Date: 20100318
  Transmission Date: 20100710
  Serious: Yes (Disabling)
  Sender: FDA-Public Use
  Company Number: 8054231

PATIENT
  Sex: Male
  Weight: 35 kg

DRUGS (1)
  1. KEPPRA [Suspect]
     Indication: PARTIAL SEIZURES
     Dosage: 900 MG, 900 MG (500 MG-400 MG) ORAL)
     Route: 048
     Dates: start: 20080517

REACTIONS (1)
  - OPTIC ATROPHY [None]
